FAERS Safety Report 6541029-7 (Version None)
Quarter: 2010Q1

REPORT INFORMATION
  Report Type: 
  Country: None (occurrence: None)
  Receive Date: 20100118
  Receipt Date: 20100112
  Transmission Date: 20100710
  Serious: Yes (Hospitalization)
  Sender: FDA-Public Use
  Company Number: US-GILEAD-2010-0026452

PATIENT
  Sex: Male
  Weight: 77.3 kg

DRUGS (12)
  1. LETAIRIS [Suspect]
     Indication: PULMONARY ARTERIAL HYPERTENSION
     Route: 048
     Dates: start: 20081126
  2. REVATIO [Concomitant]
  3. PLAVIX [Concomitant]
  4. PREDNISONE [Concomitant]
  5. PRAVACHOL [Concomitant]
  6. CITALOPRAM [Concomitant]
  7. NEXIUM [Concomitant]
  8. FLOMAX [Concomitant]
  9. PERFOROMIST [Concomitant]
  10. PAROXETINE [Concomitant]
  11. ZESTRIL [Concomitant]
  12. AMBIEN [Concomitant]

REACTIONS (1)
  - PNEUMONIA [None]
